FAERS Safety Report 19595699 (Version 10)
Quarter: 2023Q4

REPORT INFORMATION
  Report Type: Spontaneous
  Country: DK (occurrence: DK)
  Receive Date: 20210722
  Receipt Date: 20231005
  Transmission Date: 20240109
  Serious: Yes (Death, Life-Threatening, Hospitalization, Other)
  Sender: FDA-Public Use
  Company Number: DK-ACCORD-232214

PATIENT
  Age: 68 Year
  Sex: Female
  Weight: 75.1 kg

DRUGS (58)
  1. GEMCITABINE HYDROCHLORIDE [Suspect]
     Active Substance: GEMCITABINE HYDROCHLORIDE
     Indication: Diffuse large B-cell lymphoma stage IV
     Dosage: 1Q2W
     Route: 042
     Dates: start: 20210202, end: 20210531
  2. OXALIPLATIN [Suspect]
     Active Substance: OXALIPLATIN
     Indication: Diffuse large B-cell lymphoma stage IV
     Dosage: 1Q2W
     Route: 042
     Dates: start: 20210202, end: 20210202
  3. EPCORITAMAB [Suspect]
     Active Substance: EPCORITAMAB
     Indication: Diffuse large B-cell lymphoma stage IV
     Dosage: PRIMIMG DOSE: 0.16 MILLIGRAM, SINGLE?DRUG INTERRUPTED
     Route: 058
     Dates: start: 20210202, end: 20210202
  4. ALLOPURINOL [Concomitant]
     Active Substance: ALLOPURINOL
     Dates: start: 20210517, end: 20210517
  5. CETIRIZINE HYDROCHLORIDE [Concomitant]
     Active Substance: CETIRIZINE HYDROCHLORIDE
     Dates: start: 20210514
  6. ONDANSETRON [Concomitant]
     Active Substance: ONDANSETRON
     Dates: start: 20210517, end: 20210517
  7. ACETAMINOPHEN [Concomitant]
     Active Substance: ACETAMINOPHEN
     Dates: start: 20210514, end: 20210624
  8. PEGFILGRASTIM [Concomitant]
     Active Substance: PEGFILGRASTIM
     Dates: start: 20210520, end: 20210520
  9. PREDNISOLONE [Concomitant]
     Active Substance: PREDNISOLONE
     Dates: start: 20210514, end: 20210711
  10. ACYCLOVIR [Concomitant]
     Active Substance: ACYCLOVIR
     Dates: start: 20210215, end: 20210624
  11. BISACODYL [Concomitant]
     Active Substance: BISACODYL
     Dates: start: 20200916
  12. CHOLECALCIFEROL [Concomitant]
     Active Substance: CHOLECALCIFEROL
     Dates: start: 20200408, end: 20210704
  13. DALTEPARIN [Concomitant]
     Active Substance: DALTEPARIN
     Dates: start: 20210325, end: 20210525
  14. POTASSIUM CHLORIDE [Concomitant]
     Active Substance: POTASSIUM CHLORIDE
     Dates: start: 20210608, end: 20210708
  15. PANTOPRAZOLE [Concomitant]
     Active Substance: PANTOPRAZOLE
     Dates: start: 20200511, end: 20210710
  16. UNIKALK [Concomitant]
     Dates: start: 20200402, end: 20210702
  17. ZOPICLONE [Concomitant]
     Active Substance: ZOPICLONE
     Dates: start: 20200318, end: 20210704
  18. SOLU-MEDROL [Concomitant]
     Active Substance: METHYLPREDNISOLONE SODIUM SUCCINATE
     Dates: start: 20210319, end: 20210711
  19. AMIODARONE [Concomitant]
     Active Substance: AMIODARONE
     Dates: start: 20210706, end: 20210706
  20. ATENOLOL [Concomitant]
     Active Substance: ATENOLOL
     Dates: start: 20210616, end: 20210629
  21. DIGOXIN [Concomitant]
     Active Substance: DIGOXIN
     Dates: start: 20210705, end: 20210705
  22. FILGRASTIM [Concomitant]
     Active Substance: FILGRASTIM
     Dates: start: 20210612, end: 20210711
  23. FUROSEMIDE [Concomitant]
     Active Substance: FUROSEMIDE
     Dates: start: 20210606
  24. FIBRINOGEN HUMAN [Concomitant]
     Active Substance: FIBRINOGEN HUMAN
     Dates: start: 20210707, end: 20210707
  25. TOCILIZUMAB [Concomitant]
     Active Substance: TOCILIZUMAB
     Dates: start: 20210707, end: 20210707
  26. POTASSIUM PHOSPHATE, DIBASIC [Concomitant]
     Active Substance: POTASSIUM PHOSPHATE, DIBASIC
     Dates: start: 20210611, end: 20210611
  27. CALCIUM POLYSTYRENE SULFONATE [Concomitant]
     Active Substance: CALCIUM POLYSTYRENE SULFONATE
     Dates: start: 20210701, end: 20210704
  28. MABLET [Concomitant]
     Dates: start: 20210610, end: 20210704
  29. CASPOFUNGIN [Concomitant]
     Active Substance: CASPOFUNGIN
     Dates: start: 20210705, end: 20210710
  30. IMMUNOGLOBULIN [Concomitant]
     Dates: start: 20210626, end: 20210627
  31. LACTULOSE [Concomitant]
     Active Substance: LACTULOSE
     Dates: start: 20210704, end: 20210710
  32. MEROPENEM [Concomitant]
     Active Substance: MEROPENEM
     Dates: start: 20210705, end: 20210710
  33. ALMINOX [Concomitant]
     Dates: start: 20210703, end: 20210711
  34. FOSCARNET [Concomitant]
     Active Substance: FOSCARNET
     Dates: start: 20210708
  35. GANCICLOVIR [Concomitant]
     Active Substance: GANCICLOVIR
     Dates: start: 20210707, end: 20210707
  36. INSULIN NOS [Concomitant]
     Active Substance: INSULIN NOS
     Dates: start: 20210701, end: 20210711
  37. CALCIUM PHOSPHATE [Concomitant]
     Active Substance: CALCIUM PHOSPHATE
     Dates: start: 20210611, end: 20210611
  38. OXALIPLATIN [Suspect]
     Active Substance: OXALIPLATIN
     Indication: Diffuse large B-cell lymphoma stage IV
     Dosage: C1D1 - C4D15
     Route: 042
     Dates: start: 20210202, end: 20210531
  39. ONDANSETRON [Concomitant]
     Active Substance: ONDANSETRON
     Dates: start: 20210304
  40. ONDANSETRON [Concomitant]
     Active Substance: ONDANSETRON
     Dates: start: 20210517, end: 20210517
  41. ACETAMINOPHEN [Concomitant]
     Active Substance: ACETAMINOPHEN
     Dates: start: 20210514, end: 20210624
  42. GEMCITABINE HYDROCHLORIDE [Suspect]
     Active Substance: GEMCITABINE HYDROCHLORIDE
     Indication: Diffuse large B-cell lymphoma stage IV
     Dosage: 1830 MILLIGRAM, SINGLE
     Route: 042
     Dates: start: 20210223, end: 20210223
  43. GEMCITABINE HYDROCHLORIDE [Suspect]
     Active Substance: GEMCITABINE HYDROCHLORIDE
     Indication: Diffuse large B-cell lymphoma stage IV
     Dosage: 1820 MILLIGRAM, SINGLE
     Route: 042
     Dates: start: 20210312, end: 20210312
  44. GEMCITABINE HYDROCHLORIDE [Suspect]
     Active Substance: GEMCITABINE HYDROCHLORIDE
     Indication: Diffuse large B-cell lymphoma stage IV
     Dosage: 1810 MILLIGRAM, SINGLE
     Route: 042
     Dates: start: 20210326, end: 20210326
  45. GEMCITABINE HYDROCHLORIDE [Suspect]
     Active Substance: GEMCITABINE HYDROCHLORIDE
     Indication: Diffuse large B-cell lymphoma stage IV
     Dosage: 1810 MILLIGRAM, SINGLE
     Route: 042
     Dates: start: 20210413, end: 20210413
  46. GEMCITABINE HYDROCHLORIDE [Suspect]
     Active Substance: GEMCITABINE HYDROCHLORIDE
     Indication: Diffuse large B-cell lymphoma stage IV
     Dosage: 1820 MILLIGRAM, SINGLE
     Route: 042
     Dates: start: 20210429, end: 20210429
  47. GEMCITABINE HYDROCHLORIDE [Suspect]
     Active Substance: GEMCITABINE HYDROCHLORIDE
     Indication: Diffuse large B-cell lymphoma stage IV
     Dosage: 1820 MILLIGRAM, SINGLE
     Route: 042
     Dates: start: 20210517, end: 20210517
  48. GEMCITABINE HYDROCHLORIDE [Suspect]
     Active Substance: GEMCITABINE HYDROCHLORIDE
     Indication: Diffuse large B-cell lymphoma stage IV
     Dosage: 1820 MILLIGRAM, SINGLE
     Route: 042
     Dates: start: 20210531, end: 20210531
  49. OXALIPLATIN [Suspect]
     Active Substance: OXALIPLATIN
     Indication: Diffuse large B-cell lymphoma stage IV
     Dosage: 183 MILLIGRAM, SINGLE
     Route: 042
     Dates: start: 20210223, end: 20210223
  50. OXALIPLATIN [Suspect]
     Active Substance: OXALIPLATIN
     Indication: Diffuse large B-cell lymphoma stage IV
     Dosage: 187 MILLIGRAM, SINGLE
     Route: 042
     Dates: start: 20210312, end: 20210312
  51. OXALIPLATIN [Suspect]
     Active Substance: OXALIPLATIN
     Indication: Diffuse large B-cell lymphoma stage IV
     Dosage: 181 MILLIGRAM, SINGLE
     Route: 042
     Dates: start: 20210326, end: 20210326
  52. OXALIPLATIN [Suspect]
     Active Substance: OXALIPLATIN
     Indication: Diffuse large B-cell lymphoma stage IV
     Dosage: 181 MILLIGRAM, SINGLE
     Route: 042
     Dates: start: 20210413, end: 20210413
  53. OXALIPLATIN [Suspect]
     Active Substance: OXALIPLATIN
     Indication: Diffuse large B-cell lymphoma stage IV
     Dosage: 182 MILLIGRAM, SINGLE
     Route: 042
     Dates: start: 20210429, end: 20210429
  54. OXALIPLATIN [Suspect]
     Active Substance: OXALIPLATIN
     Indication: Diffuse large B-cell lymphoma stage IV
     Dosage: 182 MILLIGRAM, SINGLE
     Route: 042
     Dates: start: 20210517, end: 20210517
  55. OXALIPLATIN [Suspect]
     Active Substance: OXALIPLATIN
     Indication: Diffuse large B-cell lymphoma stage IV
     Dosage: 182 MILLIGRAM, SINGLE
     Route: 042
     Dates: start: 20210531, end: 20210531
  56. EPCORITAMAB [Suspect]
     Active Substance: EPCORITAMAB
     Indication: Diffuse large B-cell lymphoma stage IV
     Dosage: INTERMEDIATE DOSE: 0.8 MILLIGRAM, SINGLE
     Route: 058
     Dates: start: 20210216, end: 20210216
  57. EPCORITAMAB [Suspect]
     Active Substance: EPCORITAMAB
     Indication: Diffuse large B-cell lymphoma stage IV
     Dosage: FULL DOSE: 48 MILLIGRAM, WEEKLY
     Route: 058
     Dates: start: 20210223, end: 20210507
  58. EPCORITAMAB [Suspect]
     Active Substance: EPCORITAMAB
     Indication: Diffuse large B-cell lymphoma stage IV
     Dosage: FULL DOSE: 48 MILLIGRAM, 1Q2W
     Route: 058
     Dates: start: 20210517, end: 20210531

REACTIONS (7)
  - Off label use [Unknown]
  - Hepatitis acute [Not Recovered/Not Resolved]
  - Myelodysplastic syndrome [Not Recovered/Not Resolved]
  - Multiple organ dysfunction syndrome [Fatal]
  - Capillary leak syndrome [Not Recovered/Not Resolved]
  - Pleural effusion [Not Recovered/Not Resolved]
  - Cytokine release syndrome [Recovered/Resolved]

NARRATIVE: CASE EVENT DATE: 20210606
